FAERS Safety Report 16240182 (Version 3)
Quarter: 2019Q3

REPORT INFORMATION
  Report Type: Report from Study
  Country: JP (occurrence: JP)
  Receive Date: 20190425
  Receipt Date: 20190709
  Transmission Date: 20191004
  Serious: Yes (Hospitalization)
  Sender: FDA-Public Use
  Company Number: JP-EISAI MEDICAL RESEARCH-EC-2019-055576

PATIENT
  Age: 77 Year
  Sex: Male
  Weight: 55 kg

DRUGS (15)
  1. TAKECAB [Concomitant]
     Active Substance: VONOPRAZAN FUMURATE
  2. AZOSEMIDE [Concomitant]
     Active Substance: AZOSEMIDE
  3. BETANIS [Concomitant]
     Active Substance: MIRABEGRON
  4. LENVATINIB [Suspect]
     Active Substance: LENVATINIB
     Route: 048
     Dates: start: 20190415, end: 20190419
  5. SENNOSIDE [Concomitant]
     Active Substance: SENNOSIDES
  6. AMLODIPINE [Concomitant]
     Active Substance: AMLODIPINE BESYLATE
  7. RYZODEG 70/30 [Concomitant]
     Active Substance: INSULIN ASPART\INSULIN DEGLUDEC
  8. LENVATINIB [Suspect]
     Active Substance: LENVATINIB
     Indication: HEPATOCELLULAR CARCINOMA
     Route: 048
     Dates: start: 20190227, end: 20190312
  9. LENVATINIB [Suspect]
     Active Substance: LENVATINIB
     Route: 048
     Dates: start: 20190513, end: 20190526
  10. BISOPROLOL FUMARATE. [Concomitant]
     Active Substance: BISOPROLOL FUMARATE
  11. NAFTOPIDIL [Concomitant]
     Active Substance: NAFTOPIDIL
  12. TOFRANIL [Concomitant]
     Active Substance: IMIPRAMINE HYDROCHLORIDE
  13. LENVATINIB [Suspect]
     Active Substance: LENVATINIB
     Route: 048
     Dates: start: 20190319, end: 20190414
  14. LENVATINIB [Suspect]
     Active Substance: LENVATINIB
     Dosage: ADMINISTRATION AT 4 MG/DAY AND 8 MG/DAY ALTERNATELY EVERY WEEK
     Route: 048
     Dates: start: 20190527
  15. NICORANDIL [Concomitant]
     Active Substance: NICORANDIL

REACTIONS (1)
  - Hepatic encephalopathy [Recovering/Resolving]

NARRATIVE: CASE EVENT DATE: 20190420
